FAERS Safety Report 25598600 (Version 1)
Quarter: 2025Q3

REPORT INFORMATION
  Report Type: Spontaneous
  Country: CA (occurrence: CA)
  Receive Date: 20250723
  Receipt Date: 20250723
  Transmission Date: 20251020
  Serious: Yes (Other)
  Sender: CELLTRION
  Company Number: CA-CELLTRION INC.-2025CA024175

PATIENT

DRUGS (1)
  1. YUFLYMA [Suspect]
     Active Substance: ADALIMUMAB-AATY
     Indication: Hidradenitis
     Dosage: MAITENANCE, 80 MG, EVERY 7 DAYS
     Route: 058
     Dates: start: 20231129

REACTIONS (2)
  - Surgery [Recovering/Resolving]
  - Intentional product use issue [Unknown]
